FAERS Safety Report 10022832 (Version 1)
Quarter: 2014Q1

REPORT INFORMATION
  Report Type: Spontaneous
  Country: US (occurrence: US)
  Receive Date: 20140319
  Receipt Date: 20140319
  Transmission Date: 20141002
  Serious: Yes (Death)
  Sender: FDA-Public Use
  Company Number: US-TEVA-470041USA

PATIENT
  Age: 0 Day
  Sex: Male

DRUGS (1)
  1. PLAN B ONE-STEP [Suspect]
     Route: 064

REACTIONS (1)
  - Foetal death [Fatal]
